FAERS Safety Report 6129349-1 (Version None)
Quarter: 2009Q1

REPORT INFORMATION
  Report Type: 
  Country: None (occurrence: None)
  Receive Date: 20090324
  Receipt Date: 20090313
  Transmission Date: 20090719
  Serious: Yes (Hospitalization)
  Sender: FDA-Public Use
  Company Number: PHHY2009US09760

PATIENT
  Age: 28 Year
  Sex: Male

DRUGS (1)
  1. BROMOCRIPTINE MESYLATE [Suspect]
     Indication: SUNCT SYNDROME

REACTIONS (2)
  - HYPOPHYSECTOMY [None]
  - PAIN [None]
